FAERS Safety Report 10025585 (Version 2)
Quarter: 2014Q2

REPORT INFORMATION
  Report Type: Spontaneous
  Country: US (occurrence: None)
  Receive Date: 20140304
  Receipt Date: 20140520
  Transmission Date: 20141212
  Serious: Yes (Other)
  Sender: FDA-Public Use
  Company Number: AEGR000335

PATIENT
  Age: 22 Year
  Sex: Male
  Weight: 60.8 kg

DRUGS (8)
  1. JUXTAPID [Suspect]
     Indication: TYPE IIA HYPERLIPIDAEMIA
     Route: 048
     Dates: start: 201302, end: 201401
  2. LIPITOR (ATORVASTATIN CALCIUM) [Concomitant]
  3. WELCHOL (COLESEVELAM HYDROCHLORIDE) [Concomitant]
  4. FISH OIL [Concomitant]
  5. ZETIA (EZETIMIBE) [Concomitant]
  6. NIASPAN (NICOTINIC ACID) [Concomitant]
  7. ASA (ACETYLSALICYLIC ACID) [Concomitant]
  8. EFFIENT (PRASUGREL HYDROCHLORIDE) [Concomitant]

REACTIONS (2)
  - Coronary artery occlusion [None]
  - Low density lipoprotein increased [None]
